FAERS Safety Report 15583805 (Version 1)
Quarter: 2018Q4

REPORT INFORMATION
  Report Type: Spontaneous
  Country: US (occurrence: US)
  Receive Date: 20181031
  Receipt Date: 20181031
  Transmission Date: 20190205
  Serious: No
  Sender: FDA-Public Use
  Company Number: None

PATIENT
  Age: 75 Year
  Sex: Male
  Weight: 84.37 kg

DRUGS (8)
  1. SIMVASTATIN. [Concomitant]
     Active Substance: SIMVASTATIN
  2. ASPIRIN 81MG [Concomitant]
     Active Substance: ASPIRIN
  3. BISACODYL. [Concomitant]
     Active Substance: BISACODYL
  4. AKORN LACTULOSE SOLUTION 10G/15ML [Suspect]
     Active Substance: LACTULOSE
     Indication: LARGE INTESTINAL OBSTRUCTION
     Dosage: ?          QUANTITY:2 DF DOSAGE FORM;OTHER FREQUENCY:USUALLY EVERY 3RD ;?
     Route: 048
  5. LISINOPRIL. [Concomitant]
     Active Substance: LISINOPRIL
  6. AMBIEN [Concomitant]
     Active Substance: ZOLPIDEM TARTRATE
  7. DOCUSATE SODIUM. [Concomitant]
     Active Substance: DOCUSATE SODIUM
  8. XANAX [Concomitant]
     Active Substance: ALPRAZOLAM

REACTIONS (7)
  - Cough [None]
  - Product substitution issue [None]
  - Gastrointestinal pain [None]
  - Throat irritation [None]
  - Burn oesophageal [None]
  - Oesophageal pain [None]
  - Abdominal pain upper [None]

NARRATIVE: CASE EVENT DATE: 20180803
